FAERS Safety Report 7130116-0 (Version None)
Quarter: 2010Q4

REPORT INFORMATION
  Report Type: 
  Country: None (occurrence: None)
  Receive Date: 20101201
  Receipt Date: 20101122
  Transmission Date: 20110411
  Serious: No
  Sender: FDA-Public Use
  Company Number: US-BIOGENIDEC-2010BI041671

PATIENT
  Age: 55 Year
  Sex: Female

DRUGS (2)
  1. TYSABRI [Suspect]
     Indication: MULTIPLE SCLEROSIS
     Route: 042
     Dates: start: 20100924, end: 20101022
  2. TYSABRI [Suspect]
     Route: 042
     Dates: start: 20100304, end: 20100401

REACTIONS (1)
  - BLOOD COUNT ABNORMAL [None]
